FAERS Safety Report 11476423 (Version 1)
Quarter: 2015Q3

REPORT INFORMATION
  Report Type: Spontaneous
  Country: US (occurrence: US)
  Receive Date: 20150909
  Receipt Date: 20150909
  Transmission Date: 20151125
  Serious: No
  Sender: FDA-Public Use
  Company Number: US-JAZZ-2015-US-005605

PATIENT
  Sex: Female

DRUGS (4)
  1. XYREM [Suspect]
     Active Substance: SODIUM OXYBATE
     Dosage: 7.5 G, QD
  2. XYREM [Suspect]
     Active Substance: SODIUM OXYBATE
     Dosage: 9 G, QD
  3. XYREM [Suspect]
     Active Substance: SODIUM OXYBATE
     Dosage: 7.5 G, QD
     Route: 048
  4. XYREM [Suspect]
     Active Substance: SODIUM OXYBATE
     Indication: NARCOLEPSY
     Dosage: UNKNOWN DOSE
     Route: 048

REACTIONS (1)
  - Migraine [Recovering/Resolving]
